FAERS Safety Report 24770257 (Version 1)
Quarter: 2024Q4

REPORT INFORMATION
  Report Type: Spontaneous
  Country: US (occurrence: None)
  Receive Date: 20241219
  Receipt Date: 20241219
  Transmission Date: 20250115
  Serious: No
  Sender: Public
  Company Number: None

PATIENT

DRUGS (2)
  1. HYDROCORTISONE\NEOMYCIN\POLYMYXIN [Suspect]
     Active Substance: HYDROCORTISONE\NEOMYCIN\POLYMYXIN
  2. OFLOXACIN [Suspect]
     Active Substance: OFLOXACIN

REACTIONS (3)
  - Treatment failure [None]
  - Drug intolerance [None]
  - Contraindicated product administered [None]

NARRATIVE: CASE EVENT DATE: 20241218
